FAERS Safety Report 9664463 (Version 1)
Quarter: 2013Q4

REPORT INFORMATION
  Report Type: Spontaneous
  Country: US (occurrence: None)
  Receive Date: 20131030
  Receipt Date: 20131030
  Transmission Date: 20140711
  Serious: Yes (Hospitalization)
  Sender: FDA-Public Use
  Company Number: None

PATIENT
  Age: 72 None
  Sex: Male
  Weight: 118.6 kg

DRUGS (1)
  1. CEPHALEXIN [Suspect]
     Route: 048
     Dates: start: 20130801, end: 20130807

REACTIONS (4)
  - Clostridium difficile colitis [None]
  - Pyrexia [None]
  - Mental status changes [None]
  - Decreased appetite [None]
